FAERS Safety Report 5325330-0 (Version None)
Quarter: 2007Q2

REPORT INFORMATION
  Report Type: 
  Country: None (occurrence: None)
  Receive Date: 20070509
  Receipt Date: 20070426
  Transmission Date: 20071010
  Serious: Yes (Death, Life-Threatening)
  Sender: FDA-Public Use
  Company Number: GXKR2007DE03773

PATIENT
  Age: 36 Year
  Sex: Male
  Weight: 110 kg

DRUGS (4)
  1. IBUHEXAL (NGX) (IBUPROFEN) FILM-COATED TABLET, 400MG [Suspect]
     Indication: PHARYNGOLARYNGEAL PAIN
     Dosage: UNK, QD, ORAL
     Route: 048
     Dates: start: 20070407, end: 20070407
  2. WICK MEDINAIT(DEXTROMETHORPHAN HYDROBROMIDE, DOXYLAMINE SUCCINATE, EPH [Suspect]
     Indication: PHARYNGOLARYNGEAL PAIN
     Dosage: 30 ML, QD, ORAL
     Route: 048
     Dates: start: 20070407, end: 20070407
  3. MALLEBRIN(HEXETIDINE) [Suspect]
     Indication: PHARYNGOLARYNGEAL PAIN
     Dosage: 5 ML, QD, ORAL
     Route: 048
     Dates: start: 20070407, end: 20070407
  4. DOLO-DOBENDAN(BENZOCAINE, CETYLPYRIDINIUM CHLORIDE) [Suspect]
     Dosage: 7 TABLETS, ORAL
     Route: 048
     Dates: start: 20070407, end: 20070407

REACTIONS (5)
  - BRAIN DEATH [None]
  - BRAIN HYPOXIA [None]
  - LARYNGEAL OEDEMA [None]
  - RESPIRATORY FAILURE [None]
  - RESUSCITATION [None]
